FAERS Safety Report 15743397 (Version 2)
Quarter: 2019Q1

REPORT INFORMATION
  Report Type: Spontaneous
  Country: CZ (occurrence: CZ)
  Receive Date: 20181220
  Receipt Date: 20190228
  Transmission Date: 20190417
  Serious: Yes (Life-Threatening, Hospitalization, Other)
  Sender: FDA-Public Use
  Company Number: CZ-BAXTER-2018BAX030134

PATIENT
  Age: 67 Year
  Sex: Female

DRUGS (7)
  1. NOVALGIN (METAMIZOLE SODIUM) [Suspect]
     Active Substance: METAMIZOLE SODIUM
     Dosage: 5ML-2,5G
     Route: 042
     Dates: start: 20181127, end: 20181127
  2. FYZIOLOGICK? ROZTOK VIAFLO [Suspect]
     Active Substance: SODIUM CHLORIDE
     Indication: ARTHROSCOPY
     Dosage: PHYSIOLOGICAL SALINE 250ML
     Route: 042
     Dates: start: 20181127, end: 20181127
  3. SEVORANE [Suspect]
     Active Substance: SEVOFLURANE
     Indication: SURGERY
     Route: 055
     Dates: start: 20181127, end: 20181127
  4. SUFENTA [Suspect]
     Active Substance: SUFENTANIL CITRATE
     Indication: ARTHROSCOPY
     Dosage: 10 UG IN EACH 2ML
     Route: 042
     Dates: start: 20181127, end: 20181127
  5. SEVORANE [Suspect]
     Active Substance: SEVOFLURANE
     Indication: ARTHROSCOPY
     Dosage: 100% 1X250ML
     Route: 055
     Dates: start: 20181126
  6. PROPOFOL. [Suspect]
     Active Substance: PROPOFOL
     Indication: ARTHROSCOPY
     Route: 042
     Dates: start: 20181127, end: 20181127
  7. NOVALGIN (METAMIZOLE SODIUM) [Suspect]
     Active Substance: METAMIZOLE SODIUM
     Indication: ARTHROSCOPY
     Dosage: 5ML-2,5G
     Route: 042
     Dates: start: 20181127, end: 20181127

REACTIONS (12)
  - Tachycardia [Recovering/Resolving]
  - Suspected product quality issue [Unknown]
  - Septic shock [Not Recovered/Not Resolved]
  - Thrombocytopenia [Recovering/Resolving]
  - Cyanosis central [Recovering/Resolving]
  - Device issue [Unknown]
  - Nausea [Recovering/Resolving]
  - Petechiae [Recovering/Resolving]
  - Vomiting [Recovering/Resolving]
  - Bacteraemia [Not Recovered/Not Resolved]
  - Hepatorenal failure [Recovering/Resolving]
  - Back pain [Recovering/Resolving]

NARRATIVE: CASE EVENT DATE: 20181127
